FAERS Safety Report 6972393-2 (Version None)
Quarter: 2010Q3

REPORT INFORMATION
  Report Type: 
  Country: None (occurrence: None)
  Receive Date: 20100909
  Receipt Date: 20100830
  Transmission Date: 20110219
  Serious: Yes (Hospitalization, Other)
  Sender: FDA-Public Use
  Company Number: SE-JNJFOC-20090105436

PATIENT
  Age: 29 Year
  Sex: Male
  Weight: 84.5 kg

DRUGS (4)
  1. REMICADE [Suspect]
     Indication: COLITIS ULCERATIVE
     Route: 042
  2. PREDNISOLONE [Suspect]
     Indication: COLITIS ULCERATIVE
     Route: 042
  3. MESALAZINE [Concomitant]
     Indication: COLITIS ULCERATIVE
     Route: 048
  4. FLUMITRAZEPAM [Concomitant]
     Indication: INSOMNIA
     Route: 048

REACTIONS (1)
  - PYREXIA [None]
